FAERS Safety Report 8517474-7 (Version None)
Quarter: 2012Q3

REPORT INFORMATION
  Report Type: 
  Country: None (occurrence: None)
  Receive Date: 20120718
  Receipt Date: 20120713
  Transmission Date: 20120928
  Serious: Yes (Hospitalization, Other)
  Sender: FDA-Public Use
  Company Number: BG-ROCHE-1084320

PATIENT
  Sex: Male
  Weight: 73 kg

DRUGS (2)
  1. COPEGUS [Suspect]
     Indication: HEPATITIS C
     Route: 048
     Dates: start: 20120514, end: 20120704
  2. PEGASYS [Suspect]
     Indication: HEPATITIS C
     Route: 058
     Dates: start: 20120514, end: 20120626

REACTIONS (3)
  - CEREBRAL INFARCTION [None]
  - ISCHAEMIC STROKE [None]
  - ENCEPHALOPATHY [None]
